FAERS Safety Report 6603158-9 (Version None)
Quarter: 2010Q1

REPORT INFORMATION
  Report Type: 
  Country: None (occurrence: None)
  Receive Date: 20100226
  Receipt Date: 20100222
  Transmission Date: 20100710
  Serious: Yes (Hospitalization)
  Sender: FDA-Public Use
  Company Number: FR-SANOFI-AVENTIS-2010SA009954

PATIENT
  Age: 84 Year
  Sex: Female

DRUGS (4)
  1. CLAFORAN [Suspect]
     Indication: MENINGITIS
     Route: 042
     Dates: start: 20090727, end: 20090729
  2. PREVISCAN [Suspect]
     Dosage: 1/2 DF DURING 2 DAYS EVERY 3 DAYS
     Route: 048
     Dates: end: 20090801
  3. PREVISCAN [Suspect]
     Dosage: 1 DF EVERY 3 DAYS
     Route: 048
     Dates: end: 20090801
  4. AMOXICILLIN [Suspect]
     Indication: MENINGITIS
     Route: 048
     Dates: start: 20090729

REACTIONS (3)
  - INTERNATIONAL NORMALISED RATIO INCREASED [None]
  - OVERDOSE [None]
  - RECTAL HAEMORRHAGE [None]
